FAERS Safety Report 23493438 (Version 1)
Quarter: 2024Q1

REPORT INFORMATION
  Report Type: Spontaneous
  Country: US (occurrence: None)
  Receive Date: 20240206
  Receipt Date: 20240206
  Transmission Date: 20240410
  Serious: No
  Sender: FDA-Public Use
  Company Number: None

PATIENT
  Age: 51 Year
  Sex: Female

DRUGS (1)
  1. HUMIRA [Suspect]
     Active Substance: ADALIMUMAB
     Indication: Hidradenitis
     Dosage: OTHER FREQUENCY : Q 2 WKS ON D 29;?
     Route: 058
     Dates: start: 202402

REACTIONS (3)
  - Nasopharyngitis [None]
  - General physical condition abnormal [None]
  - Intentional dose omission [None]
